FAERS Safety Report 24665295 (Version 2)
Quarter: 2024Q4

REPORT INFORMATION
  Report Type: Spontaneous
  Country: US (occurrence: US)
  Receive Date: 20241126
  Receipt Date: 20241221
  Transmission Date: 20250115
  Serious: No
  Sender: AMGEN
  Company Number: US-AMGEN-USASP2024231028

PATIENT
  Age: 34 Year
  Sex: Female

DRUGS (10)
  1. ENBREL [Suspect]
     Active Substance: ETANERCEPT
     Indication: Rheumatoid arthritis
     Dosage: 50 MILLIGRAM, QWK
     Route: 058
     Dates: start: 2024, end: 2024
  2. ENBREL [Suspect]
     Active Substance: ETANERCEPT
     Dosage: 50 MILLIGRAM, QWK
     Route: 058
     Dates: start: 2024
  3. CORTISONE [Suspect]
     Active Substance: CORTISONE
     Indication: Injection site pruritus
     Dosage: UNK
     Route: 065
  4. CORTISONE [Suspect]
     Active Substance: CORTISONE
     Indication: Injection site erythema
  5. COLCHICINE [Concomitant]
     Active Substance: COLCHICINE
     Indication: Rheumatoid arthritis
     Dosage: UNK
  6. METHOTREXATE [Concomitant]
     Active Substance: METHOTREXATE
     Indication: Rheumatoid arthritis
     Dosage: 10 PILLS PWE WEEK
  7. METHOTREXATE [Concomitant]
     Active Substance: METHOTREXATE
     Dosage: 20 MILLIGRAM, QWK
  8. FOLIC ACID [Concomitant]
     Active Substance: FOLIC ACID
     Dosage: 1 MILLIGRAM, QD
  9. FOLIC ACID [Concomitant]
     Active Substance: FOLIC ACID
     Route: 058
  10. FOLIC ACID [Concomitant]
     Active Substance: FOLIC ACID
     Route: 058

REACTIONS (8)
  - Injection site erythema [Recovered/Resolved]
  - Injection site pruritus [Recovered/Resolved]
  - Injection site swelling [Recovered/Resolved]
  - Red blood cell sedimentation rate [Unknown]
  - Sinusitis [Unknown]
  - Accidental exposure to product [Unknown]
  - Device difficult to use [Unknown]
  - Drug dose omission by device [Unknown]

NARRATIVE: CASE EVENT DATE: 20240101
